FAERS Safety Report 18984887 (Version 1)
Quarter: 2021Q1

REPORT INFORMATION
  Report Type: Spontaneous
  Country: RU (occurrence: RU)
  Receive Date: 20210309
  Receipt Date: 20210309
  Transmission Date: 20210420
  Serious: Yes (Hospitalization)
  Sender: FDA-Public Use
  Company Number: RU-ROCHE-2779078

PATIENT
  Sex: Female
  Weight: 62 kg

DRUGS (24)
  1. TRASTUZUMAB. [Suspect]
     Active Substance: TRASTUZUMAB
     Indication: BREAST CANCER
     Route: 065
     Dates: start: 20201009
  2. TRASTUZUMAB. [Suspect]
     Active Substance: TRASTUZUMAB
     Route: 065
     Dates: start: 20201124
  3. TRASTUZUMAB. [Suspect]
     Active Substance: TRASTUZUMAB
     Route: 065
     Dates: start: 20201215
  4. PERTUZUMAB. [Suspect]
     Active Substance: PERTUZUMAB
     Dosage: CYCLE 2 OF CHEMOTHERAPY
     Route: 065
     Dates: start: 20201030
  5. CARBOPLATIN. [Suspect]
     Active Substance: CARBOPLATIN
     Indication: BREAST CANCER
     Route: 065
     Dates: start: 20201009
  6. CARBOPLATIN. [Suspect]
     Active Substance: CARBOPLATIN
     Route: 065
     Dates: start: 20201215
  7. TRASTUZUMAB. [Suspect]
     Active Substance: TRASTUZUMAB
     Route: 065
     Dates: start: 20201030
  8. TRASTUZUMAB. [Suspect]
     Active Substance: TRASTUZUMAB
     Route: 065
     Dates: start: 20210106
  9. CARBOPLATIN. [Suspect]
     Active Substance: CARBOPLATIN
     Route: 065
     Dates: start: 20201124
  10. TRASTUZUMAB. [Suspect]
     Active Substance: TRASTUZUMAB
     Route: 065
     Dates: start: 20210127
  11. DOCETAXEL. [Suspect]
     Active Substance: DOCETAXEL
     Dosage: CYCLE 2 OF CHEMOTHERAPY 75 MG/M2 (125 MG) ON DAY 1
     Route: 065
     Dates: start: 20201030
  12. DOCETAXEL. [Suspect]
     Active Substance: DOCETAXEL
     Dosage: CYCLE 3 OF CHEMOTHERAPY 75 MG/M2 (126 MG) ON DAY 1
     Route: 065
     Dates: start: 20201124
  13. DOCETAXEL. [Suspect]
     Active Substance: DOCETAXEL
     Dosage: CYCLE 5 OF CHEMOTHERAPY 75 MG/M2 (125 MG) ON DAY 1
     Route: 065
     Dates: start: 20210106
  14. DOCETAXEL. [Suspect]
     Active Substance: DOCETAXEL
     Dosage: CYCLE 6 OF CHEMOTHERAPY 75 MG/M2 (126 MG) ON DAY 1
     Route: 065
     Dates: start: 20210127
  15. CARBOPLATIN. [Suspect]
     Active Substance: CARBOPLATIN
     Route: 065
     Dates: start: 20210127
  16. PERTUZUMAB. [Suspect]
     Active Substance: PERTUZUMAB
     Indication: BREAST CANCER
     Dosage: CYCLE 1 OF CHEMOTHERAPY 840 MG LOADING DOSE
     Route: 065
     Dates: start: 20201009
  17. CARBOPLATIN. [Suspect]
     Active Substance: CARBOPLATIN
     Route: 065
     Dates: start: 20210106
  18. PERTUZUMAB. [Suspect]
     Active Substance: PERTUZUMAB
     Dosage: CYCLE 4 OF CHEMOTHERAPY
     Route: 065
     Dates: start: 20201215
  19. DOCETAXEL. [Suspect]
     Active Substance: DOCETAXEL
     Indication: BREAST CANCER
     Dosage: CYCLE 1 OF CHEMOTHERAPY 75 MG/M2 (127.5 MG) ON DAY 1
     Route: 065
     Dates: start: 20201009
  20. PERTUZUMAB. [Suspect]
     Active Substance: PERTUZUMAB
     Dosage: CYCLE 3 OF CHEMOTHERAPY
     Route: 065
     Dates: start: 20201124
  21. PERTUZUMAB. [Suspect]
     Active Substance: PERTUZUMAB
     Dosage: CYCLE 5 OF CHEMOTHERAPY
     Route: 065
     Dates: start: 20210106
  22. PERTUZUMAB. [Suspect]
     Active Substance: PERTUZUMAB
     Dosage: CYCLE 6 OF CHEMOTHERAPY
     Route: 065
     Dates: start: 20210127
  23. CARBOPLATIN. [Suspect]
     Active Substance: CARBOPLATIN
     Route: 065
     Dates: start: 20201030
  24. DOCETAXEL. [Suspect]
     Active Substance: DOCETAXEL
     Dosage: CYCLE 4 OF CHEMOTHERAPY 75 MG/M2 (124.5 MG) ON DAY 1
     Route: 065
     Dates: start: 20201215

REACTIONS (3)
  - Uterine leiomyoma [Unknown]
  - Lymphadenopathy [Unknown]
  - Hyperplasia [Unknown]
